FAERS Safety Report 18564353 (Version 3)
Quarter: 2021Q4

REPORT INFORMATION
  Report Type: Spontaneous
  Country: JP (occurrence: JP)
  Receive Date: 20201201
  Receipt Date: 20211029
  Transmission Date: 20220303
  Serious: Yes (Hospitalization, Other)
  Sender: FDA-Public Use
  Company Number: JP-PFIZER INC-2020467005

PATIENT
  Age: 4 Decade
  Sex: Male

DRUGS (2)
  1. METHOTREXATE SODIUM [Suspect]
     Active Substance: METHOTREXATE SODIUM
     Indication: Rheumatoid arthritis
     Dosage: 6 MG, ONCE A WEEK
     Route: 048
  2. METHOTREXATE SODIUM [Suspect]
     Active Substance: METHOTREXATE SODIUM
     Dosage: 6 MG FOR 13 CONSECUTIVE DAYS FOLLOWED BY A 2 AND A HALF MONTH TREATMENT BREAK
     Route: 048

REACTIONS (3)
  - Accidental overdose [Unknown]
  - Pancytopenia [Recovered/Resolved]
  - Mucocutaneous disorder [Recovering/Resolving]
